FAERS Safety Report 10392891 (Version 1)
Quarter: 2014Q3

REPORT INFORMATION
  Report Type: Spontaneous
  Country: US (occurrence: None)
  Receive Date: 20140815
  Receipt Date: 20140815
  Transmission Date: 20150326
  Serious: Yes (Hospitalization)
  Sender: FDA-Public Use
  Company Number: 2014SUP00035

PATIENT
  Age: 36 Year
  Sex: Female

DRUGS (8)
  1. HYDROMORPHONE HCL [Concomitant]
     Active Substance: HYDROMORPHONE HYDROCHLORIDE
  2. ALPRAZOLAM. [Concomitant]
     Active Substance: ALPRAZOLAM
  3. ZONISAMIDE. [Concomitant]
     Active Substance: ZONISAMIDE
  4. OXYCODONE HYDROCHLORIDE. [Concomitant]
     Active Substance: OXYCODONE HYDROCHLORIDE
  5. CLONAZEPAM. [Concomitant]
     Active Substance: CLONAZEPAM
  6. TROKENDI XR [Suspect]
     Active Substance: TOPIRAMATE
     Indication: CONVULSION
     Route: 048
     Dates: start: 201407
  7. LAMOTRIGINE. [Suspect]
     Active Substance: LAMOTRIGINE
     Indication: CONVULSION
     Route: 048
  8. CITALOPRAM [Concomitant]
     Active Substance: CITALOPRAM HYDROBROMIDE

REACTIONS (19)
  - Facial bones fracture [None]
  - Feeling abnormal [None]
  - Swelling face [None]
  - Paranoia [None]
  - Anxiety [None]
  - Tooth fracture [None]
  - Nausea [None]
  - Haematoma [None]
  - Convulsion [None]
  - Headache [None]
  - Cognitive disorder [None]
  - Pain [None]
  - Bone pain [None]
  - Head injury [None]
  - Loss of consciousness [None]
  - Periorbital contusion [None]
  - Neck pain [None]
  - Fear [None]
  - Fall [None]

NARRATIVE: CASE EVENT DATE: 20140707
